FAERS Safety Report 7021059-1 (Version None)
Quarter: 2010Q3

REPORT INFORMATION
  Report Type: 
  Country: None (occurrence: None)
  Receive Date: 20100929
  Receipt Date: 20100705
  Transmission Date: 20110219
  Serious: Yes (Other)
  Sender: FDA-Public Use
  Company Number: DE-BAYER-201029746GPV

PATIENT
  Age: 17 Year

DRUGS (1)
  1. CIPRO [Suspect]
     Indication: UPPER RESPIRATORY TRACT INFECTION BACTERIAL
     Dosage: UNIT DOSE: 250 MG
     Route: 065
     Dates: start: 20100607, end: 20100611

REACTIONS (6)
  - CRANIAL NERVE DISORDER [None]
  - DYSGEUSIA [None]
  - EYE DISORDER [None]
  - INVESTIGATION ABNORMAL [None]
  - ORAL DISORDER [None]
  - VISUAL IMPAIRMENT [None]
